FAERS Safety Report 17030625 (Version 1)
Quarter: 2019Q4

REPORT INFORMATION
  Report Type: Report from Study
  Country: US (occurrence: US)
  Receive Date: 20191114
  Receipt Date: 20191114
  Transmission Date: 20200122
  Serious: Yes (Hospitalization)
  Sender: FDA-Public Use
  Company Number: US-MYLANLABS-2019M1108708

PATIENT
  Age: 30 Year
  Sex: Female

DRUGS (3)
  1. TEMOZOLOMIDE. [Suspect]
     Active Substance: TEMOZOLOMIDE
     Indication: GLIOBLASTOMA
     Dosage: LOW-DOSE
     Route: 065
  2. TEMOZOLOMIDE. [Suspect]
     Active Substance: TEMOZOLOMIDE
     Dosage: RECEIVED 16 CYCLES
     Route: 065
  3. ISOTRETINOIN. [Suspect]
     Active Substance: ISOTRETINOIN
     Indication: GLIOBLASTOMA
     Dosage: OCCASIONAL ADMINISTRATION
     Route: 065

REACTIONS (2)
  - Undifferentiated sarcoma [Recovered/Resolved]
  - Malignant melanoma [Recovered/Resolved]
